FAERS Safety Report 9158570 (Version 1)
Quarter: 2013Q1

REPORT INFORMATION
  Report Type: Spontaneous
  Country: BR (occurrence: BR)
  Receive Date: 20130312
  Receipt Date: 20130312
  Transmission Date: 20140127
  Serious: Yes (Hospitalization, Other)
  Sender: FDA-Public Use
  Company Number: BR-PFIZER INC-2013081408

PATIENT
  Age: 78 Year
  Sex: Male

DRUGS (2)
  1. LYRICA [Suspect]
     Dosage: 75 MG
     Route: 048
  2. CELEBRA [Suspect]
     Dosage: 200 MG
     Route: 048

REACTIONS (4)
  - Cerebral ischaemia [Unknown]
  - Monoplegia [Unknown]
  - Ischaemia [Unknown]
  - Prostate cancer [Unknown]
